FAERS Safety Report 4277680-7 (Version None)
Quarter: 2004Q1

REPORT INFORMATION
  Report Type: 
  Country: None (occurrence: None)
  Receive Date: 20040121
  Receipt Date: 20040107
  Transmission Date: 20041129
  Serious: Yes (Death, Other)
  Sender: FDA-Public Use
  Company Number: JP_031102150

PATIENT
  Age: 38 Year
  Sex: Male
  Weight: 55 kg

DRUGS (6)
  1. ZYPREXA [Suspect]
     Indication: SCHIZOPHRENIA
     Dosage: 5 MG/3 DAY
     Dates: start: 20020311, end: 20031026
  2. LORAZEPAM [Concomitant]
  3. NITRAZEPAM [Concomitant]
  4. HIRNAMIN (LEVOMEPROMAZINE) [Concomitant]
  5. SILECE (FLUNITRAZEPAM) [Concomitant]
  6. EURODIN (ESTAZOLAM) [Concomitant]

REACTIONS (5)
  - CARDIO-RESPIRATORY ARREST [None]
  - CIRCULATORY COLLAPSE [None]
  - DIZZINESS [None]
  - LOSS OF CONSCIOUSNESS [None]
  - MYOCARDIAL INFARCTION [None]
